FAERS Safety Report 12229098 (Version 1)
Quarter: 2016Q1

REPORT INFORMATION
  Report Type: Spontaneous
  Country: None (occurrence: None)
  Receive Date: 20160331
  Receipt Date: 20160331
  Transmission Date: 20160526
  Serious: No
  Sender: FDA-Public Use
  Company Number: None

PATIENT

DRUGS (2)
  1. METFORMIN [Suspect]
     Active Substance: METFORMIN HYDROCHLORIDE
  2. GLYBURIDE. [Suspect]
     Active Substance: GLYBURIDE

REACTIONS (7)
  - Myocardial infarction [None]
  - Drug ineffective [None]
  - Sneezing [None]
  - Glycosylated haemoglobin increased [None]
  - Blood glucose increased [None]
  - Nasal disorder [None]
  - Stress [None]
